FAERS Safety Report 4719270-5 (Version None)
Quarter: 2005Q3

REPORT INFORMATION
  Report Type: 
  Country: None (occurrence: None)
  Receive Date: 20050719
  Receipt Date: 20050706
  Transmission Date: 20060218
  Serious: Yes (Death)
  Sender: FDA-Public Use
  Company Number: WAES 0507USA00956

PATIENT
  Age: 64 Year
  Sex: Male

DRUGS (4)
  1. DECADRON [Suspect]
     Indication: NEOPLASM MALIGNANT
     Dosage: 16 MG DAILY; PO
     Route: 048
  2. DECADRON [Suspect]
     Indication: SMALL CELL LUNG CANCER STAGE UNSPECIFIED
     Dosage: 16 MG DAILY; PO
     Route: 048
  3. CARBOPLATIN [Suspect]
     Indication: SMALL CELL LUNG CANCER STAGE UNSPECIFIED
  4. PACLITAXEL [Suspect]

REACTIONS (1)
  - PNEUMOCYSTIS JIROVECI PNEUMONIA [None]
